FAERS Safety Report 8584919-6 (Version None)
Quarter: 2012Q3

REPORT INFORMATION
  Report Type: 
  Country: None (occurrence: None)
  Receive Date: 20120810
  Receipt Date: 20120802
  Transmission Date: 20120928
  Serious: No
  Sender: FDA-Public Use
  Company Number: US-BAYER-2012-079303

PATIENT

DRUGS (3)
  1. IBUPROFEN [Concomitant]
     Indication: PAIN
  2. ALEVE (CAPLET) [Suspect]
     Indication: PAIN
     Dosage: UNK
     Route: 048
  3. ADVIL [Concomitant]
     Indication: PAIN

REACTIONS (1)
  - PAIN [None]
